FAERS Safety Report 23594907 (Version 5)
Quarter: 2024Q3

REPORT INFORMATION
  Report Type: Report from Study
  Country: DE (occurrence: DE)
  Receive Date: 20240305
  Receipt Date: 20240724
  Transmission Date: 20241017
  Serious: Yes (Congenital Anomaly, Other)
  Sender: LAURUS LABS LIMITED
  Company Number: DE-LAURUS LABS LIMITED-2024LAU000017

PATIENT
  Sex: Male
  Weight: 2.9 kg

DRUGS (2)
  1. EMTRICITABINE\TENOFOVIR DISOPROXIL [Suspect]
     Active Substance: EMTRICITABINE\TENOFOVIR DISOPROXIL
     Indication: Product used for unknown indication
     Dosage: UNK
     Route: 064
  2. DOLUTEGRAVIR [Suspect]
     Active Substance: DOLUTEGRAVIR
     Indication: Product used for unknown indication
     Dosage: UNK
     Route: 064

REACTIONS (8)
  - Congenital foot malformation [Unknown]
  - Congenital hand malformation [Unknown]
  - Congenital eye disorder [Unknown]
  - Macroglossia [Unknown]
  - Congenital musculoskeletal disorder of limbs [Unknown]
  - Trisomy 21 [Unknown]
  - Ventricular septal defect [Unknown]
  - Foetal exposure during pregnancy [Unknown]
